FAERS Safety Report 24140313 (Version 3)
Quarter: 2024Q4

REPORT INFORMATION
  Report Type: Spontaneous
  Country: US (occurrence: US)
  Receive Date: 20240726
  Receipt Date: 20241018
  Transmission Date: 20250115
  Serious: Yes (Other)
  Sender: SANOFI AVENTIS
  Company Number: US-SA-SAC20240722001560

PATIENT
  Age: 27 Year
  Sex: Female

DRUGS (1)
  1. NEXVIAZYME [Suspect]
     Active Substance: AVALGLUCOSIDASE ALFA-NGPT
     Indication: Glycogen storage disease type II
     Dosage: 1300 MG, QOW
     Route: 042
     Dates: start: 202407

REACTIONS (7)
  - Ophthalmoplegia [Unknown]
  - Muscular weakness [Unknown]
  - Mobility decreased [Unknown]
  - Lordosis [Unknown]
  - Throat tightness [Recovered/Resolved]
  - Cough [Recovered/Resolved]
  - Chest discomfort [Recovered/Resolved]

NARRATIVE: CASE EVENT DATE: 20240701
